FAERS Safety Report 5823642-5 (Version None)
Quarter: 2008Q3

REPORT INFORMATION
  Report Type: 
  Country: None (occurrence: None)
  Receive Date: 20080725
  Receipt Date: 20080721
  Transmission Date: 20090109
  Serious: Yes (Hospitalization)
  Sender: FDA-Public Use
  Company Number: FR-ASTRAZENECA-2008CG01087

PATIENT
  Age: 26151 Day
  Sex: Female

DRUGS (14)
  1. ARIMIDEX [Suspect]
     Indication: BREAST CANCER FEMALE
     Route: 048
     Dates: start: 20080416, end: 20080421
  2. IMOVANE [Suspect]
     Indication: INSOMNIA
     Route: 048
     Dates: end: 20080421
  3. ANAFRANIL [Concomitant]
     Indication: DEPRESSION
     Route: 048
  4. KARDEGIC [Concomitant]
     Route: 048
  5. TEMESTA [Concomitant]
     Indication: ANXIETY
     Route: 048
  6. DEBRIDAT [Concomitant]
     Indication: MUSCLE SPASMS
     Route: 048
  7. CELEBREX [Concomitant]
  8. POTASSIUM CHLORIDE [Concomitant]
  9. FORLAX [Concomitant]
  10. DAFALGAN [Concomitant]
  11. TOPALGIC [Concomitant]
  12. LOVENOX [Concomitant]
  13. UMULINE [Concomitant]
  14. AROMASINE [Concomitant]
     Indication: BREAST CANCER FEMALE
     Route: 048
     Dates: end: 20080415

REACTIONS (1)
  - PURPURA [None]
